FAERS Safety Report 7901186-4 (Version None)
Quarter: 2011Q4

REPORT INFORMATION
  Report Type: 
  Country: None (occurrence: None)
  Receive Date: 20111108
  Receipt Date: 20111027
  Transmission Date: 20120403
  Serious: Yes (Other)
  Sender: FDA-Public Use
  Company Number: AU-SANOFI-AVENTIS-2011SA071542

PATIENT
  Age: 39 Year
  Sex: Female

DRUGS (4)
  1. RIFAMPIN [Suspect]
     Route: 065
  2. DEXAMETHASONE [Suspect]
     Route: 065
  3. THERAPEUTIC RADIOPHARMACEUTICALS [Concomitant]
  4. DEXAMETHASONE [Suspect]
     Route: 065

REACTIONS (4)
  - C-REACTIVE PROTEIN INCREASED [None]
  - LUNG ABSCESS [None]
  - VOMITING [None]
  - NAUSEA [None]
